FAERS Safety Report 5905189-0 (Version None)
Quarter: 2008Q4

REPORT INFORMATION
  Report Type: 
  Country: None (occurrence: None)
  Receive Date: 20081001
  Receipt Date: 20080919
  Transmission Date: 20090506
  Serious: Yes (Other)
  Sender: FDA-Public Use
  Company Number: US-BAYER-200834312NA

PATIENT
  Sex: Male
  Weight: 71 kg

DRUGS (4)
  1. MAGNEVIST [Suspect]
     Indication: DRUG USE FOR UNKNOWN INDICATION
     Route: 065
     Dates: start: 20060714, end: 20060714
  2. PROHANCE [Suspect]
     Indication: DRUG USE FOR UNKNOWN INDICATION
     Route: 042
     Dates: start: 20060717, end: 20060717
  3. CYTARABINE [Concomitant]
     Route: 037
     Dates: start: 20060717, end: 20060725
  4. THALIDOMIDE [Concomitant]
     Route: 065
     Dates: start: 20060721, end: 20060721

REACTIONS (1)
  - NEPHROGENIC SYSTEMIC FIBROSIS [None]
